FAERS Safety Report 8541708 (Version 2)
Quarter: 2012Q4

REPORT INFORMATION
  Report Type: 
  Country: US (occurrence: US)
  Receive Date: 20120502
  Receipt Date: 20121022
  Transmission Date: 20130627
  Serious: Yes (Other)
  Sender: FDA-Public Use
  Company Number: CHPA2012US009490

PATIENT
  Age: 61 Year
  Sex: Female

DRUGS (1)
  1. EXCEDRIN MIGRAINE [Suspect]
     Indication: MIGRAINE
     Dosage: Up to 6 tablets daily
     Route: 048
     Dates: start: 2002

REACTIONS (6)
  - Lymphadenopathy [Not Recovered/Not Resolved]
  - Constipation [Unknown]
  - Pruritus [Unknown]
  - Off label use [Unknown]
  - Therapeutic response unexpected [Unknown]
  - Overdose [Unknown]
